FAERS Safety Report 8363508-2 (Version None)
Quarter: 2012Q2

REPORT INFORMATION
  Report Type: 
  Country: None (occurrence: None)
  Receive Date: 20120516
  Receipt Date: 20120511
  Transmission Date: 20120825
  Serious: Yes (Other)
  Sender: FDA-Public Use
  Company Number: CZ-PFIZER INC-2010098345

PATIENT
  Age: 63 Year
  Sex: Male

DRUGS (5)
  1. RAMIPRIL [Concomitant]
     Dosage: UNK
  2. DISOPHROL [Concomitant]
     Dosage: UNK
  3. SUTENT [Suspect]
     Indication: METASTATIC RENAL CELL CARCINOMA
     Dosage: 50 MG, UNK
     Dates: start: 20100101
  4. AMLODIPINE BESILATE [Concomitant]
     Dosage: UNK
  5. RHEFLUIN ^LECIVA^ [Concomitant]
     Dosage: UNK

REACTIONS (5)
  - BLOOD PRESSURE INCREASED [None]
  - EYELID OEDEMA [None]
  - ACUTE TONSILLITIS [None]
  - DIARRHOEA [None]
  - EPISTAXIS [None]
